FAERS Safety Report 7541590-X (Version None)
Quarter: 2011Q2

REPORT INFORMATION
  Report Type: 
  Country: None (occurrence: None)
  Receive Date: 20110613
  Receipt Date: 20110608
  Transmission Date: 20111010
  Serious: No
  Sender: FDA-Public Use
  Company Number: US-PFIZER INC-2011126645

PATIENT
  Sex: Male

DRUGS (3)
  1. GEODON [Suspect]
     Indication: AFFECTIVE DISORDER
     Dosage: 60 MG, 2X/DAY
  2. GEODON [Suspect]
     Dosage: 80 MG, 2X/DAY
     Route: 048
     Dates: end: 20110101
  3. GEODON [Suspect]
     Indication: SCHIZOPHRENIA
     Dosage: 40 MG, 2X/DAY

REACTIONS (3)
  - BURNING SENSATION [None]
  - ANXIETY [None]
  - FORMICATION [None]
